FAERS Safety Report 24248099 (Version 1)
Quarter: 2024Q3

REPORT INFORMATION
  Report Type: Report from Study
  Country: IN (occurrence: IN)
  Receive Date: 20240826
  Receipt Date: 20240826
  Transmission Date: 20241016
  Serious: Yes (Other)
  Sender: CIPLA
  Company Number: IN-CIPLA LTD.-2024IN09017

PATIENT

DRUGS (5)
  1. TORSEMIDE [Suspect]
     Active Substance: TORSEMIDE
     Indication: Product used for unknown indication
     Dosage: 1 DOSE 1 FREQUENCY (UNITS UNSPECIFIED)
     Route: 065
  2. METOPROLOL SUCCINATE [Suspect]
     Active Substance: METOPROLOL SUCCINATE
     Indication: Product used for unknown indication
     Dosage: 1 DOSE 1 FREQUENCY (UNITS UNSPECIFIED)
     Route: 065
  3. CILIX T [Concomitant]
     Indication: Product used for unknown indication
     Dosage: 1 DOSAGE FORM, QD
     Route: 065
  4. ELIXABAN [Concomitant]
     Indication: Product used for unknown indication
     Dosage: 2.5 MILLIGRAM, BID
     Route: 065
  5. GLYCIPHAGE SR [Concomitant]
     Indication: Product used for unknown indication
     Dosage: 1 GRAM, QD
     Route: 065

REACTIONS (3)
  - Bedridden [Recovering/Resolving]
  - Neuropathy peripheral [Recovering/Resolving]
  - Diet noncompliance [Recovering/Resolving]

NARRATIVE: CASE EVENT DATE: 20240601
